FAERS Safety Report 14321490 (Version 2)
Quarter: 2018Q1

REPORT INFORMATION
  Report Type: Spontaneous
  Country: AR (occurrence: AR)
  Receive Date: 20171223
  Receipt Date: 20180126
  Transmission Date: 20180509
  Serious: No
  Sender: FDA-Public Use
  Company Number: PHHY2017AR190373

PATIENT
  Age: 58 Year
  Sex: Female

DRUGS (1)
  1. LESCOL XL [Suspect]
     Active Substance: FLUVASTATIN SODIUM
     Indication: BLOOD CHOLESTEROL INCREASED
     Dosage: 1 DF, QD
     Route: 065
     Dates: start: 201712

REACTIONS (1)
  - Muscle contracture [Unknown]

NARRATIVE: CASE EVENT DATE: 20171215
